FAERS Safety Report 8895537 (Version 1)
Quarter: 2012Q4

REPORT INFORMATION
  Report Type: 
  Country: US (occurrence: US)
  Receive Date: 20121108
  Receipt Date: 20121108
  Transmission Date: 20130627
  Serious: Yes (Other)
  Sender: FDA-Public Use
  Company Number: US-GLAXOSMITHKLINE-A0999969A

PATIENT
  Age: 37 Year
  Sex: Male

DRUGS (1)
  1. POTIGA [Suspect]
     Indication: PRODUCT USED FOR UNKNOWN INDICATION
     Dosage: 200MG Three times per day
     Route: 048
     Dates: start: 20120901

REACTIONS (2)
  - Convulsion [Unknown]
  - Grand mal convulsion [Unknown]
